FAERS Safety Report 6668679-1 (Version None)
Quarter: 2010Q2

REPORT INFORMATION
  Report Type: 
  Country: None (occurrence: None)
  Receive Date: 20100406
  Receipt Date: 20100325
  Transmission Date: 20101027
  Serious: Yes (Other)
  Sender: FDA-Public Use
  Company Number: PHHY2009CA29899

PATIENT
  Sex: Female

DRUGS (9)
  1. EXJADE [Suspect]
     Indication: IRON OVERLOAD
     Dosage: 1000 MG, QD
     Route: 048
     Dates: start: 20090525
  2. EXJADE [Suspect]
     Indication: THALASSAEMIA BETA
  3. SYNTHROID [Suspect]
     Dosage: UNK
     Dates: start: 20090601
  4. SYNTHROID [Suspect]
     Dosage: TAKE HALF THE DOSE
  5. FOLIC ACID [Concomitant]
  6. VITAMIN B6 [Concomitant]
  7. VITAMIN B-12 [Concomitant]
  8. CALCIUM W/VITAMIN D NOS [Concomitant]
  9. ANTACID TAB [Concomitant]
     Dosage: UNK

REACTIONS (12)
  - ABDOMINAL DISCOMFORT [None]
  - ABDOMINAL DISTENSION [None]
  - ABDOMINAL PAIN UPPER [None]
  - DIZZINESS [None]
  - DYSPEPSIA [None]
  - GASTROOESOPHAGEAL REFLUX DISEASE [None]
  - HEPATIC PAIN [None]
  - HYPOAESTHESIA [None]
  - MALAISE [None]
  - NAUSEA [None]
  - RENAL PAIN [None]
  - WEIGHT INCREASED [None]
